FAERS Safety Report 8970379 (Version 1)
Quarter: 2012Q4

REPORT INFORMATION
  Report Type: 
  Country: US (occurrence: US)
  Receive Date: 20121218
  Receipt Date: 20121218
  Transmission Date: 20130627
  Serious: No
  Sender: FDA-Public Use
  Company Number: US-BRISTOL-MYERS SQUIBB COMPANY-17054545

PATIENT
  Age: 47 Year
  Sex: Female
  Weight: 100.22 kg

DRUGS (1)
  1. ABILIFY TABS [Suspect]
     Indication: DEPRESSION
     Dosage: exp date respectively:May2015, MAY2012
Dose increased to 30mg, again on 19Oct12,3 bottel of 15mg

REACTIONS (1)
  - Drug dispensing error [Unknown]
